FAERS Safety Report 5644411-5 (Version None)
Quarter: 2008Q1

REPORT INFORMATION
  Report Type: 
  Country: None (occurrence: None)
  Receive Date: 20080229
  Receipt Date: 20080219
  Transmission Date: 20080703
  Serious: Yes (Hospitalization)
  Sender: FDA-Public Use
  Company Number: JP-AMGEN-US262327

PATIENT
  Sex: Female
  Weight: 41 kg

DRUGS (13)
  1. ENBREL [Suspect]
     Indication: RHEUMATOID ARTHRITIS
     Route: 058
     Dates: start: 20070727, end: 20071026
  2. PREDNISOLONE [Suspect]
     Indication: RHEUMATOID ARTHRITIS
     Route: 048
     Dates: start: 20061031, end: 20070622
  3. PREDNISOLONE [Suspect]
     Dates: start: 20070622, end: 20070706
  4. PREDNISOLONE [Suspect]
     Route: 048
     Dates: start: 20070706, end: 20070720
  5. PREDNISOLONE [Suspect]
     Route: 048
     Dates: start: 20070720, end: 20071026
  6. RHEUMATREX [Suspect]
     Indication: RHEUMATOID ARTHRITIS
     Route: 048
     Dates: start: 20070706, end: 20071102
  7. RHEUMATREX [Suspect]
     Dates: start: 20071120
  8. ATELEC [Concomitant]
     Indication: HYPERTENSION
     Route: 048
     Dates: start: 20050606, end: 20080213
  9. VOLTAREN [Concomitant]
     Indication: PAIN
     Route: 048
     Dates: start: 20060131, end: 20080213
  10. ASPARA [Concomitant]
     Dates: start: 20050606, end: 20080213
  11. ISCOTIN [Concomitant]
     Route: 048
     Dates: start: 20070515, end: 20080213
  12. TAKEPRON [Concomitant]
     Indication: REFLUX OESOPHAGITIS
     Route: 048
     Dates: start: 20060131, end: 20080213
  13. AZUCURENIN S [Concomitant]
     Route: 048
     Dates: start: 20050606, end: 20080213

REACTIONS (3)
  - CELLULITIS [None]
  - FASCIITIS [None]
  - THROMBOPHLEBITIS [None]
